FAERS Safety Report 12790322 (Version 1)
Quarter: 2016Q3

REPORT INFORMATION
  Report Type: Spontaneous
  Country: PL (occurrence: PL)
  Receive Date: 20160928
  Receipt Date: 20160928
  Transmission Date: 20161109
  Serious: Yes (Death, Hospitalization)
  Sender: FDA-Public Use
  Company Number: PL-B.I. PHARMACEUTICALS,INC./RIDGEFIELD-2016-BI-63289PN

PATIENT
  Age: 83 Year
  Sex: Female
  Weight: 60 kg

DRUGS (1)
  1. PRADAXA [Suspect]
     Active Substance: DABIGATRAN ETEXILATE MESYLATE
     Indication: PRODUCT USED FOR UNKNOWN INDICATION
     Route: 065
     Dates: start: 201603, end: 20160923

REACTIONS (1)
  - Gastrointestinal haemorrhage [Fatal]

NARRATIVE: CASE EVENT DATE: 20160923
